FAERS Safety Report 8144580-1 (Version None)
Quarter: 2012Q1

REPORT INFORMATION
  Report Type: 
  Country: None (occurrence: None)
  Receive Date: 20120103
  Receipt Date: 20110926
  Transmission Date: 20120608
  Serious: No
  Sender: FDA-Public Use
  Company Number: AE-2011-001768

PATIENT
  Age: 56 Year
  Sex: Male

DRUGS (3)
  1. PEGASYS [Concomitant]
  2. RIBASPHERE [Concomitant]
  3. INCIVEK [Suspect]
     Dates: start: 20110826, end: 20110901

REACTIONS (1)
  - RASH [None]
